FAERS Safety Report 6007532-3 (Version None)
Quarter: 2008Q4

REPORT INFORMATION
  Report Type: 
  Country: None (occurrence: None)
  Receive Date: 20081217
  Receipt Date: 20080505
  Transmission Date: 20090506
  Serious: No
  Sender: FDA-Public Use
  Company Number: US-ASTRAZENECA-2008UW09194

PATIENT
  Age: 71 Year
  Sex: Male

DRUGS (5)
  1. CRESTOR [Suspect]
     Indication: BLOOD CHOLESTEROL INCREASED
     Route: 048
     Dates: start: 20080101
  2. NIASPAN [Concomitant]
  3. METOPROLOL TARTRATE [Concomitant]
  4. CIALIS [Concomitant]
  5. TRIAMCINOLONE [Concomitant]

REACTIONS (1)
  - GYNAECOMASTIA [None]
